FAERS Safety Report 9464208 (Version 5)
Quarter: 2015Q2

REPORT INFORMATION
  Report Type: Spontaneous
  Country: US (occurrence: US)
  Receive Date: 20130819
  Receipt Date: 20150414
  Transmission Date: 20150821
  Serious: Yes (Hospitalization, Disabling, Other)
  Sender: FDA-Public Use
  Company Number: US-MERCK-1308USA006556

PATIENT
  Sex: Female

DRUGS (3)
  1. CALCIUM (UNSPECIFIED) [Concomitant]
     Active Substance: CALCIUM
     Indication: PRODUCT USED FOR UNKNOWN INDICATION
     Dosage: 1200 MG, UNK
     Dates: start: 1998
  2. FOSAMAX [Suspect]
     Active Substance: ALENDRONATE SODIUM
     Indication: OSTEOPOROSIS
     Dosage: 70 MG, QW
     Route: 048
     Dates: start: 2004, end: 2009
  3. ALENDRONATE SODIUM. [Suspect]
     Active Substance: ALENDRONATE SODIUM
     Indication: OSTEOPOROSIS
     Dosage: 70 MG, QW
     Route: 048

REACTIONS (54)
  - Hypoxia [Unknown]
  - Vertebroplasty [Unknown]
  - Basal cell carcinoma [Unknown]
  - Urinary tract infection enterococcal [Unknown]
  - Craniocerebral injury [Unknown]
  - Spinal column stenosis [Unknown]
  - Hernia [Unknown]
  - Bursitis [Unknown]
  - Impaired healing [Unknown]
  - Open reduction of spinal fracture [Unknown]
  - Cholecystectomy [Unknown]
  - Irritable bowel syndrome [Unknown]
  - Cerebrovascular disorder [Unknown]
  - Appendicectomy [Unknown]
  - Jaw fracture [Unknown]
  - Medical device removal [Unknown]
  - Rib fracture [Unknown]
  - Haemoglobin decreased [Unknown]
  - Intervertebral disc degeneration [Unknown]
  - Eye penetration [Unknown]
  - Delirium [Recovered/Resolved]
  - Fracture displacement [Unknown]
  - Calcium deficiency [Unknown]
  - Fracture delayed union [Unknown]
  - Arthralgia [Unknown]
  - Parkinson^s disease [Unknown]
  - Hysterectomy [Unknown]
  - Fall [Unknown]
  - Femur fracture [Unknown]
  - Open reduction of fracture [Unknown]
  - Femur fracture [Unknown]
  - Fall [Unknown]
  - Wrist fracture [Unknown]
  - Breast pain [Unknown]
  - Hypothyroidism [Unknown]
  - Anxiety [Unknown]
  - Back pain [Not Recovered/Not Resolved]
  - Tonsillectomy [Unknown]
  - Gastrooesophageal reflux disease [Unknown]
  - Internal fixation of fracture [Unknown]
  - Atelectasis [Unknown]
  - Thoracic vertebral fracture [Unknown]
  - Loss of consciousness [Recovered/Resolved]
  - Intervertebral disc protrusion [Unknown]
  - Angina pectoris [Unknown]
  - Abdominal pain [Unknown]
  - Spinal fracture [Unknown]
  - Neurodegenerative disorder [Unknown]
  - Vertebroplasty [Unknown]
  - Ulna fracture [Unknown]
  - Fall [Unknown]
  - Impaired gastric emptying [Unknown]
  - Depression [Unknown]
  - Hypertension [Unknown]

NARRATIVE: CASE EVENT DATE: 200906
